FAERS Safety Report 12590068 (Version 3)
Quarter: 2016Q3

REPORT INFORMATION
  Report Type: Spontaneous
  Country: US (occurrence: US)
  Receive Date: 20160725
  Receipt Date: 20160818
  Transmission Date: 20161109
  Serious: No
  Sender: FDA-Public Use
  Company Number: ALCN2016US004988

PATIENT
  Sex: Male

DRUGS (1)
  1. LATANOPROST. [Suspect]
     Active Substance: LATANOPROST
     Indication: PRODUCT USED FOR UNKNOWN INDICATION
     Dosage: 1 GTT, QD
     Route: 047
     Dates: start: 20160703

REACTIONS (1)
  - Dizziness [Not Recovered/Not Resolved]

NARRATIVE: CASE EVENT DATE: 20160703
